FAERS Safety Report 7596360-3 (Version None)
Quarter: 2011Q3

REPORT INFORMATION
  Report Type: 
  Country: None (occurrence: None)
  Receive Date: 20110707
  Receipt Date: 20110705
  Transmission Date: 20111222
  Serious: Yes (Hospitalization)
  Sender: FDA-Public Use
  Company Number: FR-GILEAD-2011-0041326

PATIENT
  Sex: Female
  Weight: 97 kg

DRUGS (7)
  1. KALETRA [Concomitant]
     Dates: start: 20080903
  2. BACTRIM FAIBLE [Concomitant]
     Dates: start: 20080903, end: 20081203
  3. TRUVADA [Suspect]
     Dates: start: 20080903
  4. TRUVADA [Suspect]
     Indication: HIV INFECTION
     Dates: end: 20080520
  5. SUSTIVA [Concomitant]
     Indication: HIV INFECTION
     Dates: end: 20080520
  6. FERROUS SULFATE TAB [Concomitant]
  7. RETROVIR [Concomitant]

REACTIONS (2)
  - GESTATIONAL DIABETES [None]
  - PREGNANCY [None]
